FAERS Safety Report 14419703 (Version 1)
Quarter: 2018Q1

REPORT INFORMATION
  Report Type: Spontaneous
  Country: US (occurrence: US)
  Receive Date: 20180120
  Receipt Date: 20180120
  Transmission Date: 20180509
  Serious: No
  Sender: FDA-Public Use
  Company Number: None

PATIENT
  Age: 28 Year
  Sex: Female

DRUGS (8)
  1. BUPRENORPHINE/NALOXONE 8/2MG TAB [Suspect]
     Active Substance: BUPRENORPHINE\NALOXONE
     Indication: DRUG USE DISORDER
     Dosage: DOSE - 8MG/2MG BID
     Route: 060
     Dates: start: 20171219, end: 20180119
  2. DOXEPIN (DOXEPIN) (DOXEPIN) [Concomitant]
     Active Substance: DOXEPIN
  3. ZOFRAN (AS HYDROCHLORIDE) (ONDANSETRON HCL) [Concomitant]
  4. PRISTIQ EXTENDED-RELEASE [Concomitant]
     Active Substance: DESVENLAFAXINE SUCCINATE
  5. MIRALAX (POLYETHYLENE GLYCOL 3350) [Concomitant]
  6. ROBAXIN-750 (METHOCARBAMOL) [Concomitant]
  7. HYDROXYZINE HCL (HYDROXYZINE HCL) [Concomitant]
  8. DOCUSATE SODIUM (DOCUSATE SODIUM) [Concomitant]
     Active Substance: DOCUSATE SODIUM

REACTIONS (2)
  - Oedema peripheral [None]
  - Product formulation issue [None]

NARRATIVE: CASE EVENT DATE: 20171219
